FAERS Safety Report 4587765-3 (Version None)
Quarter: 2005Q1

REPORT INFORMATION
  Report Type: 
  Country: None (occurrence: None)
  Receive Date: 20050125
  Receipt Date: 20040830
  Transmission Date: 20050727
  Serious: No
  Sender: FDA-Public Use
  Company Number: USA030638923

PATIENT
  Age: 71 Year
  Sex: Female
  Weight: 57 kg

DRUGS (8)
  1. FORTEO [Suspect]
     Indication: OSTEOPENIA
     Dosage: 20 UG/1 DAY
     Dates: start: 20030522
  2. FORTEO [Suspect]
     Indication: OSTEOPOROSIS
     Dosage: 20 UG/1 DAY
     Dates: start: 20030522
  3. DETROL LA [Concomitant]
  4. UNITHROID (LEVOTHYROXINE SODIUM) [Concomitant]
  5. FLONASE [Concomitant]
  6. FOSAMAX [Concomitant]
  7. ALLERGY SHOT [Concomitant]
  8. ST JOHN'S WORT [Concomitant]

REACTIONS (9)
  - ARTHRALGIA [None]
  - BONE DENSITY DECREASED [None]
  - ILL-DEFINED DISORDER [None]
  - INJECTION SITE REACTION [None]
  - JOINT SWELLING [None]
  - MUSCLE SPASMS [None]
  - MUSCULOSKELETAL STIFFNESS [None]
  - PAIN IN EXTREMITY [None]
  - SKIN LACERATION [None]
